FAERS Safety Report 4657530-7 (Version None)
Quarter: 2005Q2

REPORT INFORMATION
  Report Type: 
  Country: None (occurrence: None)
  Receive Date: 20050509
  Receipt Date: 20050509
  Transmission Date: 20051028
  Serious: Yes (Disabling)
  Sender: FDA-Public Use
  Company Number: None

PATIENT
  Age: 50 Year
  Sex: Male
  Weight: 86.1834 kg

DRUGS (3)
  1. TRAMADOL 50 MG [Suspect]
     Indication: PAIN
     Dosage: X 3
     Dates: start: 20000517, end: 20050508
  2. SERTRALINE 100 MG [Suspect]
     Indication: ANXIETY
     Dosage: X1
  3. CLONAZEPAM [Concomitant]

REACTIONS (13)
  - ABNORMAL BEHAVIOUR [None]
  - ANXIETY [None]
  - CLUMSINESS [None]
  - COORDINATION ABNORMAL [None]
  - DEPRESSION [None]
  - FATIGUE [None]
  - GAIT DISTURBANCE [None]
  - MOVEMENT DISORDER [None]
  - PAIN [None]
  - SELF ESTEEM DECREASED [None]
  - SLEEP DISORDER [None]
  - SOMNOLENCE [None]
  - TREMOR [None]
